FAERS Safety Report 7865161-0 (Version None)
Quarter: 2011Q4

REPORT INFORMATION
  Report Type: 
  Country: None (occurrence: None)
  Receive Date: 20111028
  Receipt Date: 20101025
  Transmission Date: 20120403
  Serious: No
  Sender: FDA-Public Use
  Company Number: US-GLAXOSMITHKLINE-A0888634A

PATIENT
  Sex: Female

DRUGS (2)
  1. NO CONCURRENT MEDICATION [Concomitant]
  2. ADVAIR DISKUS 100/50 [Suspect]
     Indication: MULTIPLE ALLERGIES
     Route: 065
     Dates: end: 20101001

REACTIONS (6)
  - CANDIDIASIS [None]
  - TONGUE DISCOLOURATION [None]
  - PHARYNGEAL DISORDER [None]
  - ORAL FUNGAL INFECTION [None]
  - LEUKOPLAKIA ORAL [None]
  - DYSPHAGIA [None]
